FAERS Safety Report 8796049 (Version 3)
Quarter: 2012Q4

REPORT INFORMATION
  Report Type: 
  Country: JP (occurrence: JP)
  Receive Date: 20120919
  Receipt Date: 20121022
  Transmission Date: 20130627
  Serious: Yes (Other)
  Sender: FDA-Public Use
  Company Number: JP-B.I. PHARMACEUTICALS,INC./RIDGEFIELD-2012-EU-04549GD

PATIENT
  Age: 74 Year
  Sex: Male
  Weight: 85.6 kg

DRUGS (1)
  1. DABIGATRAN ETEXILATE [Suspect]
     Indication: ATRIAL FIBRILLATION
     Dosage: 220 mg
     Route: 048
     Dates: start: 20120123, end: 20120201

REACTIONS (2)
  - Atrial thrombosis [Recovered/Resolved]
  - Drug effect incomplete [Unknown]
